FAERS Safety Report 10440202 (Version 1)
Quarter: 2014Q3

REPORT INFORMATION
  Report Type: Spontaneous
  Country: US (occurrence: US)
  Receive Date: 20140908
  Receipt Date: 20140908
  Transmission Date: 20150326
  Serious: No
  Sender: FDA-Public Use
  Company Number: US-BRISTOL-MYERS SQUIBB COMPANY-20107934

PATIENT
  Age: 21 Year
  Sex: Female

DRUGS (1)
  1. ABILIFY [Suspect]
     Active Substance: ARIPIPRAZOLE
     Indication: PSYCHOTIC DISORDER
     Dosage: STARTED WITH 20 MG AND DOSE REDUCED TO 5 THEN 2 MG, LATER INCREASED TO 5MG

REACTIONS (3)
  - Eye movement disorder [Unknown]
  - Photophobia [Unknown]
  - Off label use [Unknown]
